FAERS Safety Report 10521191 (Version 2)
Quarter: 2014Q4

REPORT INFORMATION
  Report Type: Spontaneous
  Country: BR (occurrence: BR)
  Receive Date: 20141016
  Receipt Date: 20141016
  Transmission Date: 20150528
  Serious: Yes (Other)
  Sender: FDA-Public Use
  Company Number: BR-AMGEN-BRASP2014075756

PATIENT
  Age: 65 Year
  Sex: Female
  Weight: 70 kg

DRUGS (4)
  1. ENDOFOLIN [Concomitant]
     Active Substance: FOLIC ACID
     Indication: RHEUMATOID ARTHRITIS
     Dosage: TWO TABLETS, DAILY
  2. METHOTREXATE [Concomitant]
     Active Substance: METHOTREXATE
     Dosage: 5 TABLETS OF 2.5MG (12.5 MG), WEEKLY
  3. ENBREL [Suspect]
     Active Substance: ETANERCEPT
     Indication: RHEUMATOID ARTHRITIS
     Dosage: ONE INJECTION OF 50 MG, WEEKLY
     Route: 065
     Dates: start: 20140814, end: 20140925
  4. HYDREA [Concomitant]
     Active Substance: HYDROXYUREA
     Indication: BLOOD DISORDER
     Dosage: ONE TABLET, DAILY

REACTIONS (10)
  - Hypersensitivity [Unknown]
  - Respiratory tract congestion [Unknown]
  - Throat irritation [Unknown]
  - Nasopharyngitis [Not Recovered/Not Resolved]
  - Bronchopneumonia [Unknown]
  - Drug ineffective [Unknown]
  - Osteoarthritis [Unknown]
  - Body temperature decreased [Not Recovered/Not Resolved]
  - Pharyngitis [Unknown]
  - Tracheobronchitis [Not Recovered/Not Resolved]

NARRATIVE: CASE EVENT DATE: 2014
